FAERS Safety Report 14813569 (Version 1)
Quarter: 2018Q2

REPORT INFORMATION
  Report Type: Spontaneous
  Country: IT (occurrence: IT)
  Receive Date: 20180426
  Receipt Date: 20180426
  Transmission Date: 20180711
  Serious: Yes (Hospitalization)
  Sender: FDA-Public Use
  Company Number: IT-ASTRAZENECA-2018SE51701

PATIENT
  Age: 75 Year
  Sex: Female

DRUGS (8)
  1. FOLINA [Concomitant]
     Active Substance: FOLIC ACID
  2. SEQUACOR [Suspect]
     Active Substance: BISOPROLOL
     Indication: HYPERTENSION
     Route: 048
     Dates: start: 20170101, end: 20180218
  3. TRIATEC (RAMIPRIL) [Concomitant]
     Active Substance: RAMIPRIL
  4. DEPAKIN [Suspect]
     Active Substance: VALPROATE SODIUM
     Indication: EPILEPSY
     Route: 048
     Dates: start: 20170101, end: 20180218
  5. CARDIOASPIRIN [Concomitant]
     Active Substance: ASPIRIN
  6. SEROQUEL [Suspect]
     Active Substance: QUETIAPINE FUMARATE
     Indication: PSYCHOTIC DISORDER
     Route: 048
     Dates: start: 20170101, end: 20180218
  7. AKINETON [Concomitant]
     Active Substance: BIPERIDEN HYDROCHLORIDE
  8. LANSOX [Concomitant]
     Active Substance: LANSOPRAZOLE

REACTIONS (2)
  - Sopor [Unknown]
  - Hyponatraemic syndrome [Unknown]

NARRATIVE: CASE EVENT DATE: 20180218
